FAERS Safety Report 7358839-9 (Version None)
Quarter: 2011Q1

REPORT INFORMATION
  Report Type: 
  Country: None (occurrence: None)
  Receive Date: 20110317
  Receipt Date: 20110308
  Transmission Date: 20110831
  Serious: Yes (Other)
  Sender: FDA-Public Use
  Company Number: B0700203A

PATIENT
  Sex: Female

DRUGS (2)
  1. COMBIVIR [Suspect]
     Indication: ANTIVIRAL PROPHYLAXIS
     Dates: start: 20100506
  2. LOPINAVIR/RITONAVIR [Suspect]
     Indication: PROPHYLAXIS AGAINST HIV INFECTION
     Dates: start: 20101103

REACTIONS (2)
  - ABORTION SPONTANEOUS [None]
  - DRUG EXPOSURE DURING PREGNANCY [None]
